FAERS Safety Report 22098967 (Version 1)
Quarter: 2023Q1

REPORT INFORMATION
  Report Type: Spontaneous
  Country: FR (occurrence: FR)
  Receive Date: 20230315
  Receipt Date: 20230315
  Transmission Date: 20230418
  Serious: Yes (Life-Threatening, Other)
  Sender: FDA-Public Use
  Company Number: FR-009507513-2303CHN003606

PATIENT
  Age: 55 Year
  Sex: Male

DRUGS (3)
  1. PEMBROLIZUMAB [Suspect]
     Active Substance: PEMBROLIZUMAB
     Indication: Malignant melanoma stage IV
     Dosage: 2 MG/KG, Q3W
  2. BINIMETINIB [Concomitant]
     Active Substance: BINIMETINIB
     Indication: Malignant melanoma stage IV
  3. ENCORAFENIB [Concomitant]
     Active Substance: ENCORAFENIB
     Indication: Malignant melanoma stage IV

REACTIONS (3)
  - Toxic epidermal necrolysis [Recovered/Resolved]
  - Drug eruption [Recovered/Resolved]
  - Oral lichenoid reaction [Recovered/Resolved]
